FAERS Safety Report 20065038 (Version 3)
Quarter: 2022Q2

REPORT INFORMATION
  Report Type: Report from Study
  Country: US (occurrence: US)
  Receive Date: 20211113
  Receipt Date: 20220419
  Transmission Date: 20220721
  Serious: No
  Sender: FDA-Public Use
  Company Number: US-NOVARTISTESTPH-NVSC2021US259699

PATIENT
  Sex: Male

DRUGS (1)
  1. KESIMPTA [Suspect]
     Active Substance: OFATUMUMAB
     Indication: Multiple sclerosis
     Dosage: 20 MG, QMO (BENEATH THE SKIN)
     Route: 058
     Dates: start: 20211105

REACTIONS (6)
  - Feeling hot [Unknown]
  - Flushing [Unknown]
  - Walking aid user [Unknown]
  - SARS-CoV-2 test positive [Unknown]
  - Throat irritation [Recovered/Resolved]
  - Cough [Unknown]
